FAERS Safety Report 5277557-4 (Version None)
Quarter: 2007Q1

REPORT INFORMATION
  Report Type: 
  Country: None (occurrence: None)
  Receive Date: 20070327
  Receipt Date: 20061002
  Transmission Date: 20070707
  Serious: No
  Sender: FDA-Public Use
  Company Number: DE-BAXTER-2006BH013688

PATIENT

DRUGS (1)
  1. DOPAMINE HYDROCHLORIDE [Suspect]
     Indication: MEDICATION ERROR
     Route: 042

REACTIONS (3)
  - BLOOD PRESSURE INCREASED [None]
  - MEDICATION ERROR [None]
  - TACHYCARDIA [None]
